FAERS Safety Report 7467022-8 (Version None)
Quarter: 2011Q2

REPORT INFORMATION
  Report Type: 
  Country: None (occurrence: None)
  Receive Date: 20110509
  Receipt Date: 20110505
  Transmission Date: 20111010
  Serious: Yes (Life-Threatening, Hospitalization, Other)
  Sender: FDA-Public Use
  Company Number: GXKR2010DE01744

PATIENT
  Age: 77 Year
  Sex: Male
  Weight: 68 kg

DRUGS (6)
  1. SIMVASTATIN [Suspect]
     Dosage: 40 MG DAILY
     Route: 048
     Dates: start: 20090304, end: 20090922
  2. SIMVASTATIN [Suspect]
     Dosage: 20 MG DAILY
     Route: 048
     Dates: start: 20070701, end: 20090303
  3. ASPIRIN [Suspect]
     Dosage: 100-300 MG DAILY
     Route: 048
     Dates: start: 20070725, end: 20091118
  4. INSULIN [Suspect]
     Indication: INSULIN-REQUIRING TYPE 2 DIABETES MELLITUS
     Dosage: SINGLE DOSE DIFFERENT, BREAK: 03-04 MAR
     Route: 058
     Dates: start: 20090302
  5. GLYBURIDE [Suspect]
     Indication: INSULIN-REQUIRING TYPE 2 DIABETES MELLITUS
     Dosage: SINGLE DOSE DIFFERENT, 2.5-15 MG/DAILY
     Route: 048
     Dates: start: 20070701, end: 20090922
  6. ASPIRIN [Suspect]
     Dosage: 100-300 MG DAILY
     Route: 048
     Dates: start: 20070725, end: 20091118

REACTIONS (1)
  - COOMBS POSITIVE HAEMOLYTIC ANAEMIA [None]
